FAERS Safety Report 11396911 (Version 1)
Quarter: 2015Q3

REPORT INFORMATION
  Report Type: Spontaneous
  Country: US (occurrence: US)
  Receive Date: 20150819
  Receipt Date: 20150819
  Transmission Date: 20151125
  Serious: No
  Sender: FDA-Public Use
  Company Number: US-LPDUSPRD-20150511

PATIENT
  Age: 85 Year
  Sex: Male

DRUGS (5)
  1. HYDRALAZINE [Concomitant]
     Active Substance: HYDRALAZINE HYDROCHLORIDE
     Dosage: 1.5 TABS THREE TIMES DAILY
     Route: 048
  2. LEVOTHYROXINE. [Concomitant]
     Active Substance: LEVOTHYROXINE
     Dosage: 137 MCG DAILY
     Route: 048
  3. ISOSORBIDE MONONITRATE. [Concomitant]
     Active Substance: ISOSORBIDE MONONITRATE
     Dosage: 1 TAB DAILY
     Route: 048
  4. INJECTAFER [Suspect]
     Active Substance: FERRIC CARBOXYMALTOSE
     Dosage: 750MG/15ML OVER 7 MINUTES
     Route: 042
     Dates: start: 20141009, end: 20141027
  5. LASIX [Concomitant]
     Active Substance: FUROSEMIDE
     Dosage: 1 TAB. DAILY
     Route: 048

REACTIONS (2)
  - Skin discolouration [Not Recovered/Not Resolved]
  - Extravasation [Unknown]

NARRATIVE: CASE EVENT DATE: 20141009
